FAERS Safety Report 14561934 (Version 1)
Quarter: 2018Q1

REPORT INFORMATION
  Report Type: Spontaneous
  Country: US (occurrence: US)
  Receive Date: 20180222
  Receipt Date: 20180222
  Transmission Date: 20180509
  Serious: No
  Sender: FDA-Public Use
  Company Number: US-ASTRAZENECA-2018SE20997

PATIENT
  Age: 67 Year
  Sex: Female

DRUGS (3)
  1. MOVANTIK [Suspect]
     Active Substance: NALOXEGOL OXALATE
     Indication: CONSTIPATION
     Route: 048
  2. METHADONE [Concomitant]
     Active Substance: METHADONE HYDROCHLORIDE
     Dosage: FREQUENCY UNKNOWN
     Route: 065
  3. OXYCODONE [Concomitant]
     Active Substance: OXYCODONE
     Dosage: FREQUENCY UNKNOWN
     Route: 065

REACTIONS (2)
  - Constipation [Unknown]
  - Paralysis [Unknown]
